FAERS Safety Report 22298676 (Version 2)
Quarter: 2023Q2

REPORT INFORMATION
  Report Type: Spontaneous
  Country: US (occurrence: US)
  Receive Date: 20230509
  Receipt Date: 20230510
  Transmission Date: 20230721
  Serious: Yes (Other)
  Sender: FDA-Public Use
  Company Number: US-PFIZER INC-PV202300060568

PATIENT
  Age: 58 Year
  Sex: Female
  Weight: 59.42 kg

DRUGS (1)
  1. ESTRING [Suspect]
     Active Substance: ESTRADIOL
     Dosage: UNK

REACTIONS (3)
  - Postmenopausal haemorrhage [Unknown]
  - Poor quality device used [Unknown]
  - Device colour issue [Unknown]

NARRATIVE: CASE EVENT DATE: 20230101
